FAERS Safety Report 8540812 (Version 2)
Quarter: 2012Q4

REPORT INFORMATION
  Report Type: Report from Study
  Country: FR (occurrence: FR)
  Receive Date: 20120502
  Receipt Date: 20120904
  Transmission Date: 20130627
  Serious: Yes (Hospitalization)
  Sender: FDA-Public Use
  Company Number: FR-B.I. PHARMACEUTICALS,INC./RIDGEFIELD-2011-FF-00958FF

PATIENT
  Age: 80 Year
  Sex: Female
  Weight: 55 kg

DRUGS (4)
  1. PRADAXA [Suspect]
     Indication: HIP ARTHROPLASTY
     Dosage: 75 mg
     Route: 048
     Dates: start: 20110623, end: 20110623
  2. PRADAXA [Suspect]
     Indication: THROMBOSIS PROPHYLAXIS
     Dosage: 150 mg
     Route: 048
     Dates: start: 20110624, end: 20110627
  3. LOVENOX [Concomitant]
  4. KARDEGIC [Concomitant]
     Indication: ATRIAL FIBRILLATION

REACTIONS (6)
  - Anaemia [Recovered/Resolved]
  - Gastric ulcer haemorrhage [Unknown]
  - Erysipelas [Recovered/Resolved]
  - Wound infection [Unknown]
  - Oedema [Unknown]
  - Subcutaneous haematoma [Unknown]
